FAERS Safety Report 5328670-4 (Version None)
Quarter: 2007Q2

REPORT INFORMATION
  Report Type: 
  Country: None (occurrence: None)
  Receive Date: 20070518
  Receipt Date: 20070517
  Transmission Date: 20071010
  Serious: Yes (Hospitalization)
  Sender: FDA-Public Use
  Company Number: A0650683A

PATIENT
  Age: 69 Year
  Sex: Male
  Weight: 86 kg

DRUGS (2)
  1. ROSIGLITAZONE [Suspect]
     Indication: DEMENTIA ALZHEIMER'S TYPE
     Dosage: 2MG PER DAY
     Route: 048
     Dates: start: 20070117
  2. DONEPEZIL HCL [Concomitant]
     Indication: DEMENTIA ALZHEIMER'S TYPE
     Route: 048
     Dates: start: 20050601

REACTIONS (2)
  - DIARRHOEA [None]
  - MELAENA [None]
